FAERS Safety Report 9080633 (Version 1)
Quarter: 2013Q1

REPORT INFORMATION
  Report Type: Spontaneous
  Country: US (occurrence: US)
  Receive Date: 20130131
  Receipt Date: 20130131
  Transmission Date: 20140127
  Serious: Yes (Hospitalization)
  Sender: FDA-Public Use
  Company Number: US-AMGEN-USASP2013005630

PATIENT
  Age: 65 Year
  Sex: Female

DRUGS (1)
  1. ENBREL [Suspect]
     Indication: ANKYLOSING SPONDYLITIS
     Dosage: 50 MG, QWK
     Dates: start: 20121107, end: 20121215

REACTIONS (6)
  - Blood potassium decreased [Recovered/Resolved]
  - Appendicitis [Recovered/Resolved]
  - Urticaria [Not Recovered/Not Resolved]
  - Skin infection [Not Recovered/Not Resolved]
  - Tooth infection [Recovered/Resolved]
  - Urinary tract infection [Not Recovered/Not Resolved]
